FAERS Safety Report 6692184-X (Version None)
Quarter: 2010Q2

REPORT INFORMATION
  Report Type: 
  Country: None (occurrence: None)
  Receive Date: 20100422
  Receipt Date: 20100415
  Transmission Date: 20101027
  Serious: Yes (Death)
  Sender: FDA-Public Use
  Company Number: IT-BRISTOL-MYERS SQUIBB COMPANY-15070212

PATIENT
  Sex: Male
  Weight: 160 kg

DRUGS (2)
  1. ERBITUX [Suspect]
  2. RADIATION THERAPY [Suspect]

REACTIONS (1)
  - RESPIRATORY ARREST [None]
